FAERS Safety Report 5517160-1 (Version None)
Quarter: 2007Q4

REPORT INFORMATION
  Report Type: 
  Country: None (occurrence: None)
  Receive Date: 20071114
  Receipt Date: 20071112
  Transmission Date: 20080405
  Serious: Yes (Other)
  Sender: FDA-Public Use
  Company Number: D0055100A

PATIENT

DRUGS (1)
  1. ARIXTRA [Suspect]
     Route: 058
     Dates: start: 20070101

REACTIONS (5)
  - AURICULAR SWELLING [None]
  - EAR HAEMORRHAGE [None]
  - HAEMORRHAGE [None]
  - INCORRECT DRUG ADMINISTRATION DURATION [None]
  - LOCAL SWELLING [None]
